FAERS Safety Report 19459820 (Version 1)
Quarter: 2021Q2

REPORT INFORMATION
  Report Type: Spontaneous
  Country: JP (occurrence: JP)
  Receive Date: 20210625
  Receipt Date: 20210625
  Transmission Date: 20210717
  Serious: Yes (Other)
  Sender: FDA-Public Use
  Company Number: NVSJ2021JP009395

PATIENT
  Age: 50 Year
  Sex: Female

DRUGS (2)
  1. FINGOLIMOD. [Suspect]
     Active Substance: FINGOLIMOD
     Indication: MULTIPLE SCLEROSIS
     Dosage: UNK
     Route: 065
  2. MAYZENT [Suspect]
     Active Substance: SIPONIMOD
     Indication: SECONDARY PROGRESSIVE MULTIPLE SCLEROSIS
     Dosage: UNK
     Route: 048

REACTIONS (10)
  - Lymphocyte count decreased [Recovered/Resolved]
  - Gait disturbance [Unknown]
  - Muscle spasms [Unknown]
  - Dysaesthesia [Unknown]
  - Lhermitte^s sign [Unknown]
  - White blood cell count decreased [Unknown]
  - Depressive symptom [Unknown]
  - Secondary progressive multiple sclerosis [Unknown]
  - Condition aggravated [Unknown]
  - Hyperreflexia [Unknown]
